FAERS Safety Report 20355872 (Version 1)
Quarter: 2022Q1

REPORT INFORMATION
  Report Type: Spontaneous
  Country: TR (occurrence: TR)
  Receive Date: 20220120
  Receipt Date: 20220120
  Transmission Date: 20220423
  Serious: Yes (Hospitalization, Other)
  Sender: FDA-Public Use
  Company Number: TR-ORGANON-O2201TUR000974

PATIENT
  Age: 18 Year
  Sex: Female

DRUGS (5)
  1. MIRTAZAPINE [Suspect]
     Active Substance: MIRTAZAPINE
     Dosage: 900 MILLIGRAM
     Route: 048
  2. VENLAFAXINE [Concomitant]
     Active Substance: VENLAFAXINE HYDROCHLORIDE
     Indication: Depressive symptom
     Dosage: 75 MILLIGRAM, QD
  3. VENLAFAXINE [Concomitant]
     Active Substance: VENLAFAXINE HYDROCHLORIDE
     Dosage: 150 MILLIGRAM, QD (DOSE INCREASED AFTER SUICIDE ATTEMPT)
  4. OLANZAPINE [Concomitant]
     Active Substance: OLANZAPINE
     Indication: Drug therapy
     Dosage: 5 MILLIGRAM, QD
  5. OLANZAPINE [Concomitant]
     Active Substance: OLANZAPINE
     Dosage: 10 MILLIGRAM, QD (DOSE INCREASED AFTER SUICIDE ATTEMPT)

REACTIONS (3)
  - Suicide attempt [Recovered/Resolved]
  - Neutropenia [Recovered/Resolved]
  - Intentional overdose [Unknown]
